FAERS Safety Report 17700704 (Version 2)
Quarter: 2020Q3

REPORT INFORMATION
  Report Type: Spontaneous
  Country: US (occurrence: US)
  Receive Date: 20200423
  Receipt Date: 20200807
  Transmission Date: 20201102
  Serious: Yes (Death, Hospitalization)
  Sender: FDA-Public Use
  Company Number: US-TAKEDA-2020TUS019538

PATIENT
  Age: 90 Year
  Sex: Male

DRUGS (1)
  1. NINLARO [Suspect]
     Active Substance: IXAZOMIB CITRATE
     Indication: PLASMA CELL MYELOMA
     Dosage: 3 MILLIGRAM
     Route: 048

REACTIONS (5)
  - Death [Fatal]
  - Infection [Unknown]
  - Tremor [Unknown]
  - Decreased activity [Unknown]
  - Hypotension [Unknown]

NARRATIVE: CASE EVENT DATE: 20200417
